FAERS Safety Report 6742623-0 (Version None)
Quarter: 2010Q2

REPORT INFORMATION
  Report Type: 
  Country: None (occurrence: None)
  Receive Date: 20100524
  Receipt Date: 20100408
  Transmission Date: 20101027
  Serious: Yes (Other)
  Sender: FDA-Public Use
  Company Number: ACO_00684_2010

PATIENT
  Sex: Male
  Weight: 61.2356 kg

DRUGS (11)
  1. AMPYRA [Suspect]
     Indication: MULTIPLE SCLEROSIS
     Dosage: (10 MG QD)
     Dates: start: 20100407, end: 20100410
  2. BACLOFEN [Concomitant]
  3. NEURONTIN [Concomitant]
  4. PROTONIX [Concomitant]
  5. XANAX [Concomitant]
  6. CYMBALTA [Concomitant]
  7. FLEXERIL [Concomitant]
  8. MIRALAX [Concomitant]
  9. TRIAMTERENE AND HYDROCHLOROTHIAZIDE [Concomitant]
  10. NAMENDA [Concomitant]
  11. EXELON [Concomitant]

REACTIONS (1)
  - MULTIPLE SCLEROSIS [None]
